FAERS Safety Report 4607594-1 (Version None)
Quarter: 2005Q1

REPORT INFORMATION
  Report Type: 
  Country: None (occurrence: None)
  Receive Date: 20050310
  Receipt Date: 20050225
  Transmission Date: 20050727
  Serious: Yes (Hospitalization)
  Sender: FDA-Public Use
  Company Number: 2005-0008095

PATIENT
  Age: 3 Year
  Sex: 0

DRUGS (8)
  1. VIREAD [Suspect]
     Dosage: TRANSPLACENTAL
     Route: 064
     Dates: start: 20020429, end: 20020704
  2. HIVID [Suspect]
     Dosage: TRANSPLACENTAL
     Route: 064
     Dates: start: 20020429, end: 20020704
  3. KALETRA [Suspect]
     Dosage: TRANSPLACENTAL
     Route: 064
     Dates: start: 20020429, end: 20020704
  4. RETROVIR [Suspect]
     Dates: start: 20020704
  5. ABACAVIR (ABACAVIR) [Concomitant]
  6. LAMIVUDINE [Concomitant]
  7. NEVIRAPINE [Concomitant]
  8. DIDANOSINE [Concomitant]

REACTIONS (4)
  - CAESAREAN SECTION [None]
  - DEVELOPMENTAL DELAY [None]
  - DRUG EXPOSURE DURING PREGNANCY [None]
  - MENTAL RETARDATION SEVERITY UNSPECIFIED [None]
